FAERS Safety Report 6504786-1 (Version None)
Quarter: 2009Q4

REPORT INFORMATION
  Report Type: 
  Country: None (occurrence: None)
  Receive Date: 20091218
  Receipt Date: 20091217
  Transmission Date: 20100525
  Serious: Yes (Death)
  Sender: FDA-Public Use
  Company Number: US-ASTRAZENECA-2008UW26486

PATIENT
  Age: 33 Year
  Sex: Male
  Weight: 89.8 kg

DRUGS (11)
  1. SEROQUEL [Suspect]
     Indication: DEPRESSION
     Dosage: 25-300 MG
     Route: 048
     Dates: start: 20020601
  2. SEROQUEL [Suspect]
     Dosage: 100-300 MG
     Route: 048
     Dates: start: 20060701, end: 20070623
  3. ZYPREXA [Concomitant]
     Dates: start: 20060101, end: 20070623
  4. DEPAKOTE [Concomitant]
     Dates: start: 20010501, end: 20070623
  5. TRAZODONE HCL [Concomitant]
     Dates: start: 20010601, end: 20070623
  6. ALPRAZOLAM [Concomitant]
     Dates: start: 20050801, end: 20070623
  7. CLONAZEPAM [Concomitant]
     Dates: start: 20040701, end: 20040801
  8. FLUOXETINE HCL [Concomitant]
     Dates: start: 20040701, end: 20040801
  9. BENZTROPINE MESYLATE [Concomitant]
     Dates: start: 20040801
  10. ZOLOFT [Concomitant]
     Dates: start: 20010501
  11. AMITRIPTYLINE HCL [Concomitant]
     Dates: start: 20011101, end: 20011201

REACTIONS (8)
  - ABDOMINAL PAIN UPPER [None]
  - BACK PAIN [None]
  - DIABETES MELLITUS [None]
  - HYPERGLYCAEMIA [None]
  - NAUSEA [None]
  - OBESITY [None]
  - PANCREATITIS [None]
  - WEIGHT INCREASED [None]
